FAERS Safety Report 7357128-6 (Version None)
Quarter: 2011Q1

REPORT INFORMATION
  Report Type: 
  Country: None (occurrence: None)
  Receive Date: 20110308
  Receipt Date: 20110223
  Transmission Date: 20110831
  Serious: Yes (Disabling)
  Sender: FDA-Public Use
  Company Number: 1000019117

PATIENT
  Age: 51 Year
  Sex: Female

DRUGS (1)
  1. MILNACIPRAN (MILNACIPRAN HYDROCHLORIDE) (15 MILLIGRAM, TABLETS) [Suspect]
     Dosage: ORAL
     Route: 048
     Dates: start: 20060301, end: 20070901

REACTIONS (3)
  - MASTICATION DISORDER [None]
  - DYSPHAGIA [None]
  - DYSTONIA [None]
